FAERS Safety Report 17069185 (Version 1)
Quarter: 2019Q4

REPORT INFORMATION
  Report Type: Spontaneous
  Country: US (occurrence: US)
  Receive Date: 20191124
  Receipt Date: 20191124
  Transmission Date: 20200122
  Serious: No
  Sender: FDA-Public Use
  Company Number: US-009507513-1911USA008885

PATIENT
  Age: 26 Year
  Sex: Female
  Weight: 67.58 kg

DRUGS (1)
  1. NEXPLANON [Suspect]
     Active Substance: ETONOGESTREL
     Dosage: 68 MILLIGRAM/ONCE AT RIGHT UPPER ARM, 8-10 CM FROM THE MEDIAL EPICONDYLE AND 3-5 CM BELOW THE SULCUS
     Route: 059
     Dates: start: 20191030

REACTIONS (4)
  - Device difficult to use [Recovered/Resolved]
  - Complication of device insertion [Recovered/Resolved]
  - Product quality issue [Unknown]
  - No adverse event [Unknown]

NARRATIVE: CASE EVENT DATE: 20191030
